FAERS Safety Report 5490758-5 (Version None)
Quarter: 2007Q4

REPORT INFORMATION
  Report Type: 
  Country: None (occurrence: None)
  Receive Date: 20071019
  Receipt Date: 20071008
  Transmission Date: 20080405
  Serious: Yes (Other)
  Sender: FDA-Public Use
  Company Number: GB-WYE-G00442307

PATIENT
  Sex: Male

DRUGS (5)
  1. EFFEXOR XR [Suspect]
     Route: 048
     Dates: start: 20000101
  2. ASPIRIN [Concomitant]
     Dosage: UNKNOWN
  3. PREDNISOLONE [Concomitant]
     Dosage: UNKNOWN
  4. NITRAZEPAM [Concomitant]
     Dosage: UNKNOWN
  5. SOLPADOL [Concomitant]
     Dosage: UNKNOWN

REACTIONS (4)
  - DIZZINESS [None]
  - ERECTILE DYSFUNCTION [None]
  - PALPITATIONS [None]
  - SELF MUTILATION [None]
